FAERS Safety Report 9292454 (Version 1)
Quarter: 2013Q2

REPORT INFORMATION
  Report Type: Spontaneous
  Country: JP (occurrence: JP)
  Receive Date: 20130516
  Receipt Date: 20130516
  Transmission Date: 20140414
  Serious: Yes (Hospitalization)
  Sender: FDA-Public Use
  Company Number: JP-PFIZER INC-2013149726

PATIENT
  Sex: 0

DRUGS (2)
  1. ALDACTONE A [Suspect]
     Dosage: UNK
     Route: 048
  2. NORVASC OD [Suspect]
     Dosage: UNK
     Route: 048

REACTIONS (1)
  - Blood pressure decreased [Unknown]
